FAERS Safety Report 5318413-2 (Version None)
Quarter: 2007Q2

REPORT INFORMATION
  Report Type: 
  Country: None (occurrence: None)
  Receive Date: 20070501
  Receipt Date: 20070425
  Transmission Date: 20071010
  Serious: Yes (Other)
  Sender: FDA-Public Use
  Company Number: S07-USA-01739-01

PATIENT
  Sex: Female

DRUGS (2)
  1. NAMENDA [Suspect]
     Dates: start: 20070201
  2. HYDROXYUREA [Suspect]
     Dosage: 500 MG
     Dates: start: 20070201

REACTIONS (1)
  - BLOOD POTASSIUM DECREASED [None]
